FAERS Safety Report 6644452-5 (Version None)
Quarter: 2010Q1

REPORT INFORMATION
  Report Type: 
  Country: None (occurrence: None)
  Receive Date: 20100322
  Receipt Date: 20100316
  Transmission Date: 20100710
  Serious: Yes (Other)
  Sender: FDA-Public Use
  Company Number: BR-ROCHE-691552

PATIENT
  Sex: Female
  Weight: 58 kg

DRUGS (4)
  1. RIVOTRIL [Suspect]
     Indication: PANIC ATTACK
     Dosage: TAKEN ORALLY, PRESCRIBED ROUTE SUBLINGUAL, STRENGTH: 0.25 MG
     Route: 050
     Dates: start: 20100316
  2. RIVOTRIL [Suspect]
     Dosage: ROUTE ORAL, STRENGTH: 0.5 MG
     Route: 050
     Dates: start: 19980101, end: 20100315
  3. CITALOPRAM [Concomitant]
     Indication: PANIC ATTACK
     Dates: start: 20100301
  4. GESTODENE AND ETHINYL ESTRADIOL [Concomitant]
     Indication: CONTRACEPTION

REACTIONS (3)
  - INCORRECT ROUTE OF DRUG ADMINISTRATION [None]
  - LEUKAEMIA [None]
  - NO ADVERSE EVENT [None]
